FAERS Safety Report 5065359-3 (Version None)
Quarter: 2006Q3

REPORT INFORMATION
  Report Type: 
  Country: None (occurrence: None)
  Receive Date: 20060725
  Receipt Date: 20060703
  Transmission Date: 20061208
  Serious: Yes (Other)
  Sender: FDA-Public Use
  Company Number: 2006RR-02947

PATIENT
  Age: 66 Year
  Sex: Male

DRUGS (1)
  1. GABAPENTIN [Suspect]
     Dosage: 900 MG, SINGLE,

REACTIONS (15)
  - ABASIA [None]
  - AREFLEXIA [None]
  - BLOOD CREATININE INCREASED [None]
  - BLOOD UREA INCREASED [None]
  - DRUG LEVEL INCREASED [None]
  - DYSARTHRIA [None]
  - DYSKINESIA [None]
  - DYSSTASIA [None]
  - EXTENSOR PLANTAR RESPONSE [None]
  - FALL [None]
  - FLUID INTAKE REDUCED [None]
  - HYPOAESTHESIA [None]
  - MENTAL IMPAIRMENT [None]
  - MUSCLE CONTRACTIONS INVOLUNTARY [None]
  - MYOCLONUS [None]
